FAERS Safety Report 9315867 (Version 6)
Quarter: 2013Q4

REPORT INFORMATION
  Report Type: Spontaneous
  Country: US (occurrence: US)
  Receive Date: 20130530
  Receipt Date: 20131004
  Transmission Date: 20140711
  Serious: No
  Sender: FDA-Public Use
  Company Number: US-009507513-1305USA012670

PATIENT
  Age: 62 Year
  Sex: Male

DRUGS (6)
  1. REBETOL [Suspect]
     Indication: CHRONIC HEPATITIS C
     Dosage: 1200 MG, QD (DIVIDED DOSES)
     Route: 048
     Dates: start: 20130401
  2. REBETOL [Suspect]
     Dosage: 800 MG, QD (DIVIDED DOSES)
     Route: 048
  3. REBETOL [Suspect]
     Dosage: 600 MG, UNK
     Route: 048
  4. VICTRELIS [Suspect]
     Indication: CHRONIC HEPATITIS C
     Dosage: UNK
     Route: 048
     Dates: start: 20130401
  5. PEGASYS [Suspect]
     Indication: CHRONIC HEPATITIS C
     Dosage: 180 MCG / KG, 1 IN 1 WEEK
     Route: 065
     Dates: start: 20130401
  6. SERTRALINE HYDROCHLORIDE [Concomitant]

REACTIONS (10)
  - Full blood count decreased [Unknown]
  - Depressed mood [Unknown]
  - Dry mouth [Unknown]
  - Stomatitis [Recovering/Resolving]
  - Fatigue [Not Recovered/Not Resolved]
  - Decreased appetite [Unknown]
  - Anaemia [Unknown]
  - Nausea [Recovering/Resolving]
  - Toothache [Unknown]
  - Dental caries [Unknown]
